FAERS Safety Report 7337786-2 (Version None)
Quarter: 2011Q1

REPORT INFORMATION
  Report Type: 
  Country: None (occurrence: None)
  Receive Date: 20110308
  Receipt Date: 20110224
  Transmission Date: 20110831
  Serious: Yes (Other)
  Sender: FDA-Public Use
  Company Number: SE-SANOFI-AVENTIS-2011SA002528

PATIENT
  Age: 84 Year
  Sex: Male

DRUGS (3)
  1. MULTAQ [Suspect]
     Indication: ATRIAL FIBRILLATION
     Route: 048
     Dates: start: 20100701
  2. WARFARIN [Concomitant]
     Route: 048
  3. METOPROLOL [Concomitant]
     Route: 048
     Dates: start: 20100101

REACTIONS (4)
  - ATRIAL FIBRILLATION [None]
  - BLOOD CREATININE INCREASED [None]
  - RASH PRURITIC [None]
  - DIARRHOEA [None]
